FAERS Safety Report 4717464-6 (Version None)
Quarter: 2005Q3

REPORT INFORMATION
  Report Type: 
  Country: None (occurrence: None)
  Receive Date: 20050719
  Receipt Date: 20041111
  Transmission Date: 20060218
  Serious: Yes (Disabling, Other)
  Sender: FDA-Public Use
  Company Number: US-MERCK-0411USA02107

PATIENT
  Age: 75 Year
  Sex: Male
  Weight: 77 kg

DRUGS (5)
  1. VIOXX [Suspect]
     Indication: PAIN
     Route: 048
     Dates: start: 20030510, end: 20040101
  2. VIOXX [Suspect]
     Indication: ARTHRITIS
     Route: 048
     Dates: start: 20030510, end: 20040101
  3. GLUCOSAMINE [Concomitant]
     Route: 065
  4. VITAMINS (UNSPECIFIED) [Concomitant]
     Route: 065
  5. XALATAN [Concomitant]
     Indication: GLAUCOMA
     Route: 047
     Dates: start: 20021001

REACTIONS (2)
  - CORONARY ARTERY DISEASE [None]
  - DYSPNOEA EXERTIONAL [None]
